FAERS Safety Report 8127346-8 (Version None)
Quarter: 2012Q1

REPORT INFORMATION
  Report Type: 
  Country: None (occurrence: None)
  Receive Date: 20120210
  Receipt Date: 20120131
  Transmission Date: 20120608
  Serious: Yes (Hospitalization)
  Sender: FDA-Public Use
  Company Number: FR-BRISTOL-MYERS SQUIBB COMPANY-16380487

PATIENT
  Age: 69 Year
  Sex: Male

DRUGS (13)
  1. EFFEXOR [Concomitant]
     Dosage: FOR SEVERAL YEARS  RECENTLY INCREASED TO 3/DAY THEN 12JAN2012 REDUCED TO 1/DAY
  2. VITAMIN B1 + B6 [Concomitant]
     Dosage: FOR SEVERAL YEARS
  3. IRBESARTAN AND HYDROCHLOROTHIAZIDE [Suspect]
     Indication: HYPERTENSION
     Dosage: FILM-COATED TABLET  1DF=300MG/25MG
     Route: 048
     Dates: start: 20111105
  4. AMLODIPINE BESYLATE [Concomitant]
     Dates: start: 20111101
  5. ASPEGIC 325 [Concomitant]
     Dosage: FOR SEVERAL YEARS
  6. HUMALOG [Concomitant]
  7. TIAPRIDAL [Concomitant]
  8. FENOFIBRATE [Concomitant]
     Dosage: FOR SEVERAL YEARS
  9. EZETIMIBE [Concomitant]
     Dosage: FOR SEVERAL YEARS
  10. OXAZEPAM [Concomitant]
     Dosage: FOR SEVERAL YEARS
  11. LANTUS [Concomitant]
     Dosage: FOR SEVERAL YEARS
  12. PANTOPRAZOLE SODIUM [Concomitant]
     Dosage: FOR SEVERAL YEARS
  13. NEURONTIN [Concomitant]
     Dosage: FOR SEVERAL YEARS

REACTIONS (2)
  - HYPONATRAEMIA [None]
  - VOMITING [None]
